FAERS Safety Report 24130701 (Version 1)
Quarter: 2024Q3

REPORT INFORMATION
  Report Type: Spontaneous
  Country: GB (occurrence: GB)
  Receive Date: 20240724
  Receipt Date: 20240724
  Transmission Date: 20241016
  Serious: Yes (Other)
  Sender: TEVA
  Company Number: None

PATIENT
  Age: 50 Year
  Sex: Female
  Weight: 78 kg

DRUGS (5)
  1. LEVOFLOXACIN [Suspect]
     Active Substance: LEVOFLOXACIN
     Indication: Helicobacter infection
     Dosage: 500MG TWICE A DAY
     Route: 065
  2. LEVOFLOXACIN [Suspect]
     Active Substance: LEVOFLOXACIN
     Indication: Helicobacter infection
     Dosage: 500MG TWICE A DAY
     Route: 065
  3. AMOXYCILLIN AND CLARITHROMYCIN AND LANSOPRAZOLE [Concomitant]
     Route: 065
  4. AMOXYCILLIN AND CLARITHROMYCIN AND LANSOPRAZOLE [Concomitant]
     Route: 065
  5. OMEPRAZOLE [Concomitant]
     Active Substance: OMEPRAZOLE

REACTIONS (4)
  - Arthralgia [Unknown]
  - Myalgia [Unknown]
  - Insomnia [Recovered/Resolved with Sequelae]
  - Disturbance in attention [Unknown]
